FAERS Safety Report 17296169 (Version 2)
Quarter: 2020Q1

REPORT INFORMATION
  Report Type: Spontaneous
  Country: NL (occurrence: NL)
  Receive Date: 20200121
  Receipt Date: 20200204
  Transmission Date: 20200409
  Serious: Yes (Hospitalization, Other)
  Sender: FDA-Public Use
  Company Number: NL-SA-2020SA012810

PATIENT
  Age: 63 Year
  Sex: Female
  Weight: 71.3 kg

DRUGS (27)
  1. EZETIMIBE. [Concomitant]
     Active Substance: EZETIMIBE
     Indication: HYPERCHOLESTEROLAEMIA
     Dosage: 10 MG
     Route: 048
     Dates: start: 2016
  2. CICLESONIDE [Concomitant]
     Active Substance: CICLESONIDE
     Dosage: 1DD INHALE 1 D
  3. INDACATEROL [Concomitant]
     Active Substance: INDACATEROL
     Dosage: 1DD
  4. ASCAL [CARBASALATE CALCIUM] [Concomitant]
     Dosage: FOR THE NEXT 21 DAYS 1DD
  5. PREDNISONE. [Suspect]
     Active Substance: PREDNISONE
     Dosage: 22.5 MG, QD
  6. PREDNISOLON [PREDNISOLONE] [Concomitant]
     Active Substance: PREDNISOLONE
     Dosage: 30 MG, QD
     Dates: start: 202001
  7. PREDNISOLON [PREDNISOLONE] [Concomitant]
     Active Substance: PREDNISOLONE
     Dosage: 22.5 UNK
  8. VENTOLIN [Concomitant]
     Active Substance: ALBUTEROL SULFATE
     Dosage: AS NEEDED 4 INHALATIONS A DAY
  9. CLOPIDOGREL [Concomitant]
     Active Substance: CLOPIDOGREL BISULFATE
  10. DUPIXENT [Suspect]
     Active Substance: DUPILUMAB
     Indication: ASTHMA
     Dosage: 300 MG
     Route: 058
     Dates: start: 20190826, end: 20191218
  11. FOSTER [Concomitant]
     Active Substance: BECLOMETHASONE\FORMOTEROL
     Dosage: 2DD INHALE 1 D
  12. FLUTICASONE. [Concomitant]
     Active Substance: FLUTICASONE
     Dosage: 1DROP EACH NOSTRIL
  13. ITRACONAZOLE. [Concomitant]
     Active Substance: ITRACONAZOLE
     Dosage: 100 MG
  14. OMEPRAZOLE. [Concomitant]
     Active Substance: OMEPRAZOLE
     Dosage: 1DD1
  15. PREDNISONE. [Concomitant]
     Active Substance: PREDNISONE
     Dosage: 20 MG
  16. PREDNISONE. [Concomitant]
     Active Substance: PREDNISONE
     Dosage: 1WD 5MG (REDUCE
  17. PREDNISONE. [Suspect]
     Active Substance: PREDNISONE
     Indication: ASTHMA
     Dosage: 32.2 MG, QD
  18. RISEDRONIC ACID [Concomitant]
     Active Substance: RISEDRONIC ACID
     Dosage: 1WD 35MG
  19. TRAMADOL. [Concomitant]
     Active Substance: TRAMADOL
     Dosage: 50 MG
  20. PANTOPRAZOLE [Concomitant]
     Active Substance: PANTOPRAZOLE
  21. ASCAL [CARBASALATE CALCIUM] [Concomitant]
     Dosage: 100MG 1DD1
  22. DUPIXENT [Suspect]
     Active Substance: DUPILUMAB
     Indication: NASAL POLYPS
     Dosage: UNK
     Dates: start: 20190911
  23. MOMETASONE [Concomitant]
     Active Substance: MOMETASONE
     Dosage: 1DD 50 MCG IN BOTH NOSTRILS
  24. PREDNISONE. [Suspect]
     Active Substance: PREDNISONE
     Dosage: 35 MG, QD
  25. PREDNISOLON [PREDNISOLONE] [Concomitant]
     Active Substance: PREDNISOLONE
     Indication: ASTHMA
     Dosage: 32.5 MG
     Route: 048
     Dates: start: 2000
  26. CALCIUM CARBONATE AND VITAMIN D [Concomitant]
     Active Substance: CALCIUM CARBONATE\VITAMIN D
     Dosage: 1DD1
  27. TEMAZEPAM. [Concomitant]
     Active Substance: TEMAZEPAM
     Dosage: 10 MG

REACTIONS (17)
  - Cerebrovascular accident [Recovered/Resolved with Sequelae]
  - Hemiplegia [Recovering/Resolving]
  - Nervous system disorder [Recovered/Resolved with Sequelae]
  - Computerised tomogram thorax abnormal [Unknown]
  - Dysarthria [Not Recovered/Not Resolved]
  - Leukocytosis [Unknown]
  - Eosinophil count increased [Recovered/Resolved with Sequelae]
  - Lung infiltration [Recovered/Resolved with Sequelae]
  - Eosinophilic granulomatosis with polyangiitis [Recovered/Resolved with Sequelae]
  - Paraesthesia [Unknown]
  - Facial asymmetry [Unknown]
  - Headache [Unknown]
  - Epistaxis [Unknown]
  - Hemiparesis [Unknown]
  - Speech disorder [Recovering/Resolving]
  - C-reactive protein increased [Unknown]
  - Arteriosclerosis [Unknown]

NARRATIVE: CASE EVENT DATE: 2019
